FAERS Safety Report 9919134 (Version 1)
Quarter: 2014Q1

REPORT INFORMATION
  Report Type: Spontaneous
  Country: US (occurrence: US)
  Receive Date: 20140224
  Receipt Date: 20140224
  Transmission Date: 20141002
  Serious: No
  Sender: FDA-Public Use
  Company Number: US-PFIZER INC-2014052743

PATIENT
  Age: 58 Year
  Sex: Female
  Weight: 67.1 kg

DRUGS (4)
  1. EFFEXOR XR [Suspect]
     Indication: DEPRESSION
     Dosage: 75 MG, DAILY
  2. ATENOLOL [Concomitant]
     Indication: HYPERTENSION
     Dosage: UNK, DAILY
  3. ESTRADIOL [Concomitant]
     Indication: POSTOPERATIVE CARE
     Dosage: 1 MG, DAILY
  4. WELLBUTRIN [Concomitant]
     Indication: DEPRESSION
     Dosage: 300 MG, DAILY

REACTIONS (2)
  - Drug ineffective [Unknown]
  - Crying [Unknown]
